FAERS Safety Report 7486593-9 (Version None)
Quarter: 2011Q2

REPORT INFORMATION
  Report Type: 
  Country: None (occurrence: None)
  Receive Date: 20110517
  Receipt Date: 20110511
  Transmission Date: 20111010
  Serious: Yes (Hospitalization)
  Sender: FDA-Public Use
  Company Number: PHHO2011US03949

PATIENT
  Sex: Male
  Weight: 181 kg

DRUGS (2)
  1. CERTICAN [Suspect]
     Indication: RENAL TRANSPLANT
     Dosage: 2.25 MG, Q12H
     Route: 048
     Dates: start: 20110127, end: 20110301
  2. TACROLIMUS [Suspect]
     Indication: RENAL TRANSPLANT

REACTIONS (7)
  - DEEP VEIN THROMBOSIS [None]
  - RESPIRATORY DISTRESS [None]
  - TACHYPNOEA [None]
  - PYREXIA [None]
  - PNEUMONITIS [None]
  - PNEUMONIA [None]
  - ACIDOSIS [None]
